FAERS Safety Report 25987612 (Version 2)
Quarter: 2025Q4

REPORT INFORMATION
  Report Type: Report from Study
  Country: US (occurrence: None)
  Receive Date: 20251103
  Receipt Date: 20251111
  Transmission Date: 20260117
  Serious: Yes (Hospitalization, Other)
  Sender: UCB
  Company Number: UG-069-000008711

PATIENT

DRUGS (2)
  1. LEVETIRACETAM [Suspect]
     Active Substance: LEVETIRACETAM
     Indication: Epilepsy
     Dosage: 500 MILLIGRAM 8 TABS DAILY
  2. LEVETIRACETAM [Suspect]
     Active Substance: LEVETIRACETAM
     Indication: Seizure

REACTIONS (10)
  - Cancer surgery [Unknown]
  - Neoplasm malignant [Unknown]
  - Seizure [Unknown]
  - Eye haemorrhage [Unknown]
  - Eye injury [Unknown]
  - Memory impairment [Unknown]
  - Weight decreased [Unknown]
  - Anosmia [Unknown]
  - Ageusia [Unknown]
  - Decreased appetite [Unknown]
